FAERS Safety Report 4815477-7 (Version None)
Quarter: 2005Q4

REPORT INFORMATION
  Report Type: 
  Country: None (occurrence: None)
  Receive Date: 20051028
  Receipt Date: 20051028
  Transmission Date: 20060501
  Serious: Yes (Hospitalization)
  Sender: FDA-Public Use
  Company Number: None

PATIENT
  Age: 54 Year
  Sex: Male
  Weight: 109 kg

DRUGS (1)
  1. BENZOCAINE 20% [Suspect]
     Indication: BRONCHOSCOPY
     Dosage: ONE TIME DOSE

REACTIONS (3)
  - CYANOSIS [None]
  - HYPOXIA [None]
  - METHAEMOGLOBINAEMIA [None]
